FAERS Safety Report 13766573 (Version 1)
Quarter: 2017Q3

REPORT INFORMATION
  Report Type: Spontaneous
  Country: US (occurrence: US)
  Receive Date: 20170718
  Receipt Date: 20170718
  Transmission Date: 20171127
  Serious: No
  Sender: FDA-Public Use
  Company Number: None

PATIENT

DRUGS (1)
  1. RHOPHYLAC [Suspect]
     Active Substance: HUMAN RHO(D) IMMUNE GLOBULIN
     Dosage: ?          OTHER DOSE:UGM/UGM;?

REACTIONS (2)
  - Syringe issue [None]
  - Device malfunction [None]

NARRATIVE: CASE EVENT DATE: 20170718
